FAERS Safety Report 9342724 (Version 1)
Quarter: 2013Q2

REPORT INFORMATION
  Report Type: Spontaneous
  Country: US (occurrence: None)
  Receive Date: 20130530
  Receipt Date: 20130530
  Transmission Date: 20140414
  Serious: Yes (Other)
  Sender: FDA-Public Use
  Company Number: 2013P1005324

PATIENT
  Age: 14 Year
  Sex: Male
  Weight: 68.04 kg

DRUGS (5)
  1. MYORISAN 40 MG [Suspect]
     Indication: ACNE
     Route: 048
     Dates: start: 20130204, end: 201304
  2. ZIANA [Concomitant]
  3. EPIDUO [Concomitant]
  4. BENZEFOAM 5.3% [Concomitant]
  5. SOLODYN 65 [Concomitant]

REACTIONS (3)
  - Depression [None]
  - Lethargy [None]
  - Apathy [None]
